FAERS Safety Report 9778468 (Version 1)
Quarter: 2013Q4

REPORT INFORMATION
  Report Type: Spontaneous
  Country: FR (occurrence: FR)
  Receive Date: 20131223
  Receipt Date: 20131223
  Transmission Date: 20140711
  Serious: Yes (Hospitalization)
  Sender: FDA-Public Use
  Company Number: FR-ASTELLAS-2013EU011256

PATIENT
  Sex: Male

DRUGS (11)
  1. ADVAGRAF [Suspect]
     Indication: RENAL TRANSPLANT
     Dosage: 0.5 MG, UID/QD
     Route: 048
  2. OMEPRAZOLE [Concomitant]
     Dosage: 40 MG, UNKNOWN/D
     Route: 050
  3. METHYLPREDNISOLONE [Concomitant]
     Dosage: 60 MG, UNKNOWN/D
     Route: 050
  4. MATRIFEN [Concomitant]
     Dosage: UNK
     Route: 050
  5. MOVICOL                            /01749801/ [Concomitant]
     Dosage: UNK
     Route: 065
  6. PARACETAMOL [Concomitant]
     Dosage: 2 G, UNKNOWN/D
     Route: 050
  7. LYRICA [Concomitant]
     Dosage: UNK
     Route: 065
  8. RIVOTRIL [Concomitant]
     Dosage: 3 DROPS, UNKNOWN/D
     Route: 065
  9. DELURSAN [Concomitant]
     Dosage: UNK
     Route: 065
  10. LAROXYL [Concomitant]
     Dosage: UNK DROPS, UNKNOWN/D
     Route: 065
  11. ABSTRAL [Concomitant]
     Dosage: UNK
     Route: 065

REACTIONS (2)
  - Intentional drug misuse [Unknown]
  - Gastrostomy [Unknown]
